FAERS Safety Report 25994633 (Version 1)
Quarter: 2025Q4

REPORT INFORMATION
  Report Type: Spontaneous
  Country: EU (occurrence: EU)
  Receive Date: 20251104
  Receipt Date: 20251104
  Transmission Date: 20260118
  Serious: Yes (Hospitalization)
  Sender: ALEXION PHARMACEUTICALS
  Company Number: None

PATIENT
  Age: 81 Year
  Sex: Male

DRUGS (6)
  1. CALQUENCE [Suspect]
     Active Substance: ACALABRUTINIB
     Indication: Chronic lymphocytic leukaemia
     Dosage: 100 MG X2
     Dates: start: 20240912, end: 20251001
  2. ALLOPURINOL [Concomitant]
     Active Substance: ALLOPURINOL
  3. ATORVASTATIN [Concomitant]
     Active Substance: ATORVASTATIN
  4. DIPYRIDAMOLE [Concomitant]
     Active Substance: DIPYRIDAMOLE
  5. RAMIPRIL [Concomitant]
     Active Substance: RAMIPRIL
  6. Tamsulosiinihydrokloridi Orion [Concomitant]

REACTIONS (3)
  - Hypercalcaemia [Recovering/Resolving]
  - Lysozyme increased [Recovering/Resolving]
  - Renal failure [Recovering/Resolving]

NARRATIVE: CASE EVENT DATE: 20250101
